FAERS Safety Report 18027746 (Version 1)
Quarter: 2020Q3

REPORT INFORMATION
  Report Type: Report from Study
  Country: PT (occurrence: PT)
  Receive Date: 20200715
  Receipt Date: 20200715
  Transmission Date: 20201103
  Serious: Yes (Other)
  Sender: FDA-Public Use
  Company Number: PT-MYLANLABS-2020M1064393

PATIENT
  Sex: Female

DRUGS (6)
  1. ESTRADIOL. [Suspect]
     Active Substance: ESTRADIOL
     Indication: STEROID THERAPY
  2. ETHINYLESTRADIOL [Suspect]
     Active Substance: ETHINYL ESTRADIOL
     Indication: HORMONE REPLACEMENT THERAPY
     Dosage: HAD BEEN RECEIVING FOR 9 YEARS
     Route: 065
  3. NORELGESTROMIN [Suspect]
     Active Substance: NORELGESTROMIN
     Indication: HORMONE REPLACEMENT THERAPY
     Dosage: HAD BEEN RECEIVING FOR 9 YEARS
     Route: 065
  4. NORELGESTROMIN [Suspect]
     Active Substance: NORELGESTROMIN
     Indication: STEROID THERAPY
  5. ETHINYLESTRADIOL [Suspect]
     Active Substance: ETHINYL ESTRADIOL
     Indication: STEROID THERAPY
  6. ESTRADIOL. [Suspect]
     Active Substance: ESTRADIOL
     Indication: HORMONE REPLACEMENT THERAPY
     Dosage: HAD BEEN RECEIVING FOR 9 YEARS
     Route: 065

REACTIONS (1)
  - Cerebral venous sinus thrombosis [Unknown]
